FAERS Safety Report 4330246-2 (Version None)
Quarter: 2004Q1

REPORT INFORMATION
  Report Type: 
  Country: None (occurrence: None)
  Receive Date: 20040329
  Receipt Date: 20040315
  Transmission Date: 20041129
  Serious: Yes (Hospitalization)
  Sender: FDA-Public Use
  Company Number: 2004CG00526

PATIENT
  Age: 51 Year
  Sex: Female

DRUGS (10)
  1. NEXIUM [Suspect]
     Indication: STRESS ULCER
     Dates: start: 20040302, end: 20040301
  2. NEXIUM [Suspect]
     Indication: ULCER HAEMORRHAGE
     Dates: start: 20040302, end: 20040301
  3. MOPRAL [Suspect]
     Dosage: 20 MG DAILY PO
     Route: 048
     Dates: start: 20040210, end: 20040225
  4. TAZOCILLINE [Concomitant]
  5. ISUPREL [Concomitant]
  6. DIGOXIN [Concomitant]
  7. CORDARONE [Concomitant]
  8. MIDAZOLAM HCL [Concomitant]
  9. SUFENTA [Concomitant]
  10. FRAGMIN [Concomitant]

REACTIONS (6)
  - BLISTER [None]
  - DERMATITIS BULLOUS [None]
  - DERMATITIS EXFOLIATIVE [None]
  - ERYTHEMA [None]
  - STRESS SYMPTOMS [None]
  - ULCER HAEMORRHAGE [None]
